FAERS Safety Report 23218175 (Version 3)
Quarter: 2024Q1

REPORT INFORMATION
  Report Type: Report from Study
  Country: US (occurrence: US)
  Receive Date: 20231122
  Receipt Date: 20240118
  Transmission Date: 20240410
  Serious: Yes (Death, Other)
  Sender: FDA-Public Use
  Company Number: US-PFIZER INC-PV202300185430

PATIENT

DRUGS (2)
  1. DOCETAXEL [Suspect]
     Active Substance: DOCETAXEL\DOCETAXEL ANHYDROUS
     Indication: Transitional cell carcinoma
     Dosage: 37.5 MG IN A 50 ML SALINE BAG CYCLIC
  2. GEMCITABINE HYDROCHLORIDE [Suspect]
     Active Substance: GEMCITABINE HYDROCHLORIDE
     Indication: Transitional cell carcinoma
     Dosage: 1 G, IN A 50 ML BAG OF NORMAL SALINE CYCLIC

REACTIONS (3)
  - Pyelonephritis [Fatal]
  - Septic shock [Fatal]
  - Bacteraemia [Fatal]
